FAERS Safety Report 7091106-X (Version None)
Quarter: 2010Q4

REPORT INFORMATION
  Report Type: 
  Country: None (occurrence: None)
  Receive Date: 20101105
  Receipt Date: 20101105
  Transmission Date: 20110411
  Serious: Yes (Hospitalization)
  Sender: FDA-Public Use
  Company Number: None

PATIENT
  Sex: Female
  Weight: 74 kg

DRUGS (1)
  1. TEMOZOLOMIDE [Suspect]
     Dosage: 3885 MG

REACTIONS (2)
  - CEREBRAL ISCHAEMIA [None]
  - MENINGOENCEPHALITIS HERPETIC [None]
